FAERS Safety Report 5709481-4 (Version None)
Quarter: 2008Q2

REPORT INFORMATION
  Report Type: 
  Country: None (occurrence: None)
  Receive Date: 20080418
  Receipt Date: 20080407
  Transmission Date: 20081010
  Serious: Yes (Other)
  Sender: FDA-Public Use
  Company Number: BR-ROCHE-557747

PATIENT
  Age: 56 Year
  Sex: Female
  Weight: 93 kg

DRUGS (8)
  1. RIVOTRIL [Suspect]
     Indication: LABYRINTHITIS
     Route: 048
     Dates: start: 19980501
  2. SULPAN [Concomitant]
     Indication: DEPRESSION
  3. SULPAN [Concomitant]
  4. INSULIN INSULATARD NPH NORDISK [Concomitant]
  5. CAPTOPRIL [Concomitant]
     Indication: HYPERTENSION
  6. TRUSOPT [Concomitant]
     Indication: GLAUCOMA
  7. PURAN T4 [Concomitant]
     Indication: HYPOTHYROIDISM
  8. DICLOFENAC [Concomitant]

REACTIONS (5)
  - DIZZINESS [None]
  - DRUG DEPENDENCE [None]
  - MEMORY IMPAIRMENT [None]
  - PAIN [None]
  - THROMBOSIS [None]
